FAERS Safety Report 7874961-2 (Version None)
Quarter: 2011Q4

REPORT INFORMATION
  Report Type: 
  Country: None (occurrence: None)
  Receive Date: 20111031
  Receipt Date: 20111025
  Transmission Date: 20120403
  Serious: Yes (Hospitalization, Other)
  Sender: FDA-Public Use
  Company Number: RO-BAYER-2011-076396

PATIENT
  Age: 72 Year
  Sex: Male
  Weight: 55 kg

DRUGS (7)
  1. SPIRONOLACTONE [Concomitant]
     Indication: HEPATIC CIRRHOSIS
     Dosage: 100 MG, QD
     Dates: start: 20070101
  2. SORAFENIB (RAF KINASE INHIBITOR) [Suspect]
     Indication: HEPATIC NEOPLASM MALIGNANT
     Dosage: 400 MG, BID
     Route: 048
     Dates: start: 20110627, end: 20110721
  3. METFORMIN HCL [Concomitant]
     Indication: DIABETES MELLITUS
     Dosage: 500 MG, TID
     Dates: start: 19990101
  4. LINIFANIB [Suspect]
     Indication: HEPATIC NEOPLASM MALIGNANT
  5. SILYBUM MARIANUM [Concomitant]
     Indication: HEPATIC CIRRHOSIS
     Dosage: 250 MG, BID
     Dates: start: 20070101
  6. PROPRANOLOL [Concomitant]
     Indication: HEPATIC CIRRHOSIS
     Dosage: 20 MG, BID
     Dates: start: 20070101
  7. FUROSEMIDE [Concomitant]
     Indication: HEPATIC CIRRHOSIS
     Dosage: 40 MG, QOD
     Dates: start: 20070101

REACTIONS (3)
  - UPPER GASTROINTESTINAL HAEMORRHAGE [None]
  - GASTRIC ULCER [None]
  - ANAEMIA [None]
